FAERS Safety Report 4765425-3 (Version None)
Quarter: 2005Q3

REPORT INFORMATION
  Report Type: 
  Country: None (occurrence: None)
  Receive Date: 20050912
  Receipt Date: 20050830
  Transmission Date: 20060218
  Serious: Yes (Other)
  Sender: FDA-Public Use
  Company Number: GB-BOEHRINGER INGELHEIM PHARMACEUTICALS, INC.-2005-UK-01626UK

PATIENT
  Age: 82 Year
  Sex: Male
  Weight: 68.18 kg

DRUGS (4)
  1. TIOTROPIUM (00015/0190/A) [Suspect]
     Indication: CHRONIC OBSTRUCTIVE PULMONARY DISEASE
     Route: 055
     Dates: start: 20050810, end: 20050822
  2. ALBUTEROL SULFATE HFA [Concomitant]
     Route: 055
     Dates: start: 20030910
  3. IPRATROPIUM BROMIDE [Concomitant]
     Dates: start: 20030910
  4. SERETIDE EVOHALER [Concomitant]
     Dosage: 2 TWICE DAILY
     Route: 055
     Dates: start: 20030910

REACTIONS (2)
  - CONFUSIONAL STATE [None]
  - MEMORY IMPAIRMENT [None]
